FAERS Safety Report 15810553 (Version 1)
Quarter: 2019Q1

REPORT INFORMATION
  Report Type: Spontaneous
  Country: US (occurrence: US)
  Receive Date: 20190111
  Receipt Date: 20190111
  Transmission Date: 20190417
  Serious: No
  Sender: FDA-Public Use
  Company Number: US-ROCHE-2077619

PATIENT
  Sex: Female
  Weight: 62.2 kg

DRUGS (2)
  1. RITUXAN [Suspect]
     Active Substance: RITUXIMAB
     Indication: RHEUMATOID ARTHRITIS
     Dosage: ONGOING: NO
     Route: 042
     Dates: start: 20150130, end: 20150130
  2. RITUXAN [Suspect]
     Active Substance: RITUXIMAB
     Dosage: SPLIT DOSE OF 500MG THEN 500MG 2 WEEKS LATER ;ONGOING: YES
     Route: 042
     Dates: start: 2015

REACTIONS (6)
  - Haemorrhage [Unknown]
  - Scratch [Unknown]
  - Skin ulcer [Recovered/Resolved]
  - Pruritus [Unknown]
  - Chapped lips [Not Recovered/Not Resolved]
  - Lip dry [Not Recovered/Not Resolved]
